FAERS Safety Report 15584518 (Version 2)
Quarter: 2018Q4

REPORT INFORMATION
  Report Type: Spontaneous
  Country: CN (occurrence: CN)
  Receive Date: 20181105
  Receipt Date: 20181112
  Transmission Date: 20190205
  Serious: No
  Sender: FDA-Public Use
  Company Number: CN-JNJFOC-20181041032

PATIENT
  Age: 25 Year

DRUGS (2)
  1. MOTRIN [Suspect]
     Active Substance: IBUPROFEN
     Indication: VIRAL UPPER RESPIRATORY TRACT INFECTION
     Route: 048
  2. MOTRIN [Suspect]
     Active Substance: IBUPROFEN
     Indication: VIRAL INFECTION
     Route: 048

REACTIONS (1)
  - Product administered to patient of inappropriate age [Unknown]
